FAERS Safety Report 9193012 (Version 1)
Quarter: 2013Q1

REPORT INFORMATION
  Report Type: Spontaneous
  Country: CZ (occurrence: CZ)
  Receive Date: 20130327
  Receipt Date: 20130327
  Transmission Date: 20140127
  Serious: Yes (Disabling, Other)
  Sender: FDA-Public Use
  Company Number: PHHY2013CZ029572

PATIENT
  Sex: Male

DRUGS (8)
  1. GILENYA [Suspect]
     Indication: MULTIPLE SCLEROSIS
     Dosage: UNK
     Route: 048
     Dates: start: 20121206
  2. ZOLOFT [Concomitant]
  3. LEXAURIN [Concomitant]
  4. DENIBAN [Concomitant]
  5. RIVOTRIL [Concomitant]
  6. DORMICUM [Concomitant]
     Indication: SLEEP DISORDER
  7. VIGANTOL [Concomitant]
  8. HELICID [Concomitant]

REACTIONS (5)
  - Fall [Not Recovered/Not Resolved]
  - Gait disturbance [Not Recovered/Not Resolved]
  - Influenza [Not Recovered/Not Resolved]
  - Asthenia [Not Recovered/Not Resolved]
  - Dizziness [Not Recovered/Not Resolved]
